FAERS Safety Report 9615828 (Version 2)
Quarter: 2013Q4

REPORT INFORMATION
  Report Type: Report from Study
  Country: ES (occurrence: ES)
  Receive Date: 20131011
  Receipt Date: 20131018
  Transmission Date: 20140711
  Serious: Yes (Hospitalization)
  Sender: FDA-Public Use
  Company Number: ES-SA-2013SA099010

PATIENT
  Age: 68 Year
  Sex: 0

DRUGS (13)
  1. DRONEDARONE [Suspect]
     Indication: ATRIAL FIBRILLATION
     Route: 065
     Dates: start: 20130613, end: 20131001
  2. APOCARD [Concomitant]
     Dates: start: 20090410, end: 20130613
  3. EZETROL [Concomitant]
     Indication: HYPERLIPIDAEMIA
     Dates: start: 20081002
  4. SINTROM [Concomitant]
     Indication: ATRIAL FIBRILLATION
     Dates: start: 20130420
  5. OMEPRAZOLE [Concomitant]
     Indication: GASTRIC DISORDER
     Dates: start: 20070420
  6. PARAPRES [Concomitant]
     Indication: HYPERTENSION
     Dates: start: 20111220
  7. ADALAT OROS [Concomitant]
     Indication: HYPERTENSION
     Dates: start: 20111220
  8. BISOPROLOL [Concomitant]
     Indication: ATRIAL FIBRILLATION
     Dates: start: 20080528
  9. METHOTREXATE [Concomitant]
     Indication: PSORIASIS
     Dates: start: 20081002
  10. LANTUS [Concomitant]
     Indication: TYPE 2 DIABETES MELLITUS
     Dates: start: 20081002
  11. APIDRA [Concomitant]
     Indication: TYPE 2 DIABETES MELLITUS
     Dates: start: 20081002
  12. FOLIC ACID [Concomitant]
     Indication: PSORIASIS
     Dates: start: 20070427
  13. AMOXICILLIN/CLAVULANIC ACID [Concomitant]
     Indication: URINARY TRACT INFECTION
     Dosage: 875/ 125 MG
     Dates: start: 20130809, end: 20130816

REACTIONS (3)
  - Atrial fibrillation [Recovered/Resolved]
  - Atrial fibrillation [Recovered/Resolved]
  - Atrial fibrillation [Recovered/Resolved]
